FAERS Safety Report 8975949 (Version 2)
Quarter: 2013Q1

REPORT INFORMATION
  Report Type: Report from Study
  Country: JP (occurrence: JP)
  Receive Date: 20121219
  Receipt Date: 20130128
  Transmission Date: 20140127
  Serious: No
  Sender: FDA-Public Use
  Company Number: JP-GLAXOSMITHKLINE-B0853441A

PATIENT
  Age: 63 Year
  Sex: Female
  Weight: 44 kg

DRUGS (6)
  1. TYKERB [Suspect]
     Indication: BREAST CANCER
     Route: 048
     Dates: start: 20111129, end: 20120217
  2. TYKERB [Suspect]
     Indication: BREAST CANCER
     Route: 048
     Dates: start: 20120310
  3. XELODA [Suspect]
     Route: 048
     Dates: start: 20111129, end: 20120217
  4. XELODA [Suspect]
     Route: 048
     Dates: start: 20120310
  5. PYDOXAL [Concomitant]
     Indication: PROPHYLAXIS
     Route: 048
     Dates: start: 20111128
  6. HIRUDOID [Concomitant]
     Indication: PROPHYLAXIS
     Route: 061
     Dates: start: 20111128

REACTIONS (6)
  - Decreased appetite [Recovering/Resolving]
  - Hypoaesthesia [Unknown]
  - Breast pain [Unknown]
  - Pain in extremity [Recovering/Resolving]
  - White blood cell count decreased [Unknown]
  - Pruritus [Recovering/Resolving]
